FAERS Safety Report 8084556-6 (Version None)
Quarter: 2012Q1

REPORT INFORMATION
  Report Type: 
  Country: None (occurrence: None)
  Receive Date: 20120128
  Receipt Date: 20110325
  Transmission Date: 20120608
  Serious: No
  Sender: FDA-Public Use
  Company Number: US-ABBOTT-11P-163-0714273-00

PATIENT
  Sex: Male

DRUGS (17)
  1. HUMIRA [Suspect]
     Indication: PSORIATIC ARTHROPATHY
     Dates: start: 20110222
  2. VALACYCLOVIR [Concomitant]
     Indication: FUNGAL INFECTION
  3. TYLENOL W/ CODEINE NO. 3 [Concomitant]
     Indication: PAIN
     Dosage: 1-2 TABLETS DAILY
  4. LUNESTA [Concomitant]
     Indication: INSOMNIA
     Dosage: AT BEDTIME
  5. FOLIC ACID [Concomitant]
     Indication: PRODUCT USED FOR UNKNOWN INDICATION
  6. LIPITOR [Concomitant]
     Indication: HYPERCHOLESTEROLAEMIA
  7. DEPROLINE/DOVENOX CREAM [Concomitant]
     Indication: PSORIASIS
  8. VALACYCLOVIR [Concomitant]
     Indication: TINEA PEDIS
  9. HYDRALAZINE HCL [Concomitant]
     Indication: HYPERTENSION
  10. HYDROTHIAZIDE [Concomitant]
     Indication: HYPERTENSION
  11. LISINOPRIL [Concomitant]
     Indication: HYPERTENSION
  12. VERAPAMIL [Concomitant]
     Indication: HYPERTENSION
  13. HYDROCHLOROTHIAZIDE [Concomitant]
     Indication: HYPERTENSION
  14. LOPROX [Concomitant]
     Indication: FUNGAL INFECTION
  15. VITAMIN D [Concomitant]
     Indication: PRODUCT USED FOR UNKNOWN INDICATION
  16. POT CHLOR ER [Concomitant]
     Indication: HYPERTENSION
  17. FISH OIL [Concomitant]
     Indication: PRODUCT USED FOR UNKNOWN INDICATION

REACTIONS (1)
  - INJECTION SITE HAEMATOMA [None]
